FAERS Safety Report 4360930-6 (Version None)
Quarter: 2004Q2

REPORT INFORMATION
  Report Type: 
  Country: None (occurrence: None)
  Receive Date: 20040519
  Receipt Date: 20040519
  Transmission Date: 20050107
  Serious: Yes (Hospitalization)
  Sender: FDA-Public Use
  Company Number: None

PATIENT
  Age: 25 Year
  Sex: Male

DRUGS (1)
  1. PENTOSTAM 100 MG PER ML WELLCOME [Suspect]
     Indication: CUTANEOUS LEISHMANIASIS
     Dosage: 15, 000 QD MG IV
     Route: 042
     Dates: start: 20040510, end: 20040511

REACTIONS (3)
  - ELECTROCARDIOGRAM ABNORMAL [None]
  - MEDICATION ERROR [None]
  - PARAESTHESIA [None]
